FAERS Safety Report 4672385-2 (Version None)
Quarter: 2005Q2

REPORT INFORMATION
  Report Type: 
  Country: None (occurrence: None)
  Receive Date: 20050524
  Receipt Date: 20050311
  Transmission Date: 20051028
  Serious: Yes (Other)
  Sender: FDA-Public Use
  Company Number: PHEH2005US03059

PATIENT
  Age: 51 Year
  Sex: Female

DRUGS (5)
  1. LEXAPRO [Concomitant]
     Indication: DEPRESSION
     Dosage: 25 MG, QD
  2. ZONEGRAN [Concomitant]
     Indication: CONVULSION PROPHYLAXIS
     Dosage: 50 MG, QD
  3. AREDIA [Suspect]
     Indication: MULTIPLE MYELOMA
     Dosage: 90 MG, QMO
     Dates: start: 20010206, end: 20020416
  4. ZOMETA [Suspect]
     Indication: MULTIPLE MYELOMA
     Dosage: 4 MG, QMO
     Dates: start: 20020425
  5. ZOMETA [Suspect]
     Dates: start: 20041001

REACTIONS (7)
  - ASEPTIC NECROSIS BONE [None]
  - BONE DISORDER [None]
  - BONE INFECTION [None]
  - IMPAIRED HEALING [None]
  - PURULENCE [None]
  - TOOTH EXTRACTION [None]
  - WOUND DEBRIDEMENT [None]
